FAERS Safety Report 8395377-9 (Version None)
Quarter: 2012Q2

REPORT INFORMATION
  Report Type: 
  Country: None (occurrence: None)
  Receive Date: 20120530
  Receipt Date: 20120521
  Transmission Date: 20120825
  Serious: Yes (Other)
  Sender: FDA-Public Use
  Company Number: JP-VERTEX PHARMACEUTICALS INC.-AE-2012-007733

PATIENT
  Age: 64 Year
  Sex: Male

DRUGS (8)
  1. TELAVIC (TELAPREVIR) [Suspect]
     Route: 048
     Dates: start: 20120406, end: 20120506
  2. PEGINTERFERON ALFA-2B [Concomitant]
     Indication: HEPATITIS C
     Route: 051
     Dates: start: 20120328
  3. REBAMIPIDE [Concomitant]
     Route: 048
     Dates: start: 20120507
  4. ALOSENN [Concomitant]
     Route: 048
     Dates: start: 20120405
  5. RIBAVIRIN [Concomitant]
     Indication: HEPATITIS C
     Route: 048
     Dates: start: 20120328, end: 20120421
  6. RIBAVIRIN [Concomitant]
     Route: 048
     Dates: start: 20120510
  7. TELAVIC (TELAPREVIR) [Suspect]
     Indication: HEPATITIS C
     Route: 048
     Dates: start: 20120328, end: 20120405
  8. RIBAVIRIN [Concomitant]
     Route: 048
     Dates: start: 20120422, end: 20120509

REACTIONS (2)
  - HAEMOGLOBIN DECREASED [None]
  - TOXIC SKIN ERUPTION [None]
